FAERS Safety Report 4557958-X (Version None)
Quarter: 2005Q1

REPORT INFORMATION
  Report Type: 
  Country: None (occurrence: None)
  Receive Date: 20050121
  Receipt Date: 20040304
  Transmission Date: 20050727
  Serious: No
  Sender: FDA-Public Use
  Company Number: US-BRISTOL-MYERS SQUIBB COMPANY-12527412

PATIENT
  Age: 28 Year
  Sex: Female

DRUGS (3)
  1. SERZONE [Suspect]
     Indication: DEPRESSION
  2. ENTEX LA [Concomitant]
  3. HYDROCODONE + ACETAMINOPHEN [Concomitant]

REACTIONS (4)
  - ABDOMINAL PAIN LOWER [None]
  - CHEST PAIN [None]
  - HEPATIC STEATOSIS [None]
  - HEPATOMEGALY [None]
